FAERS Safety Report 20930518 (Version 1)
Quarter: 2022Q2

REPORT INFORMATION
  Report Type: Spontaneous
  Country: US (occurrence: US)
  Receive Date: 20220608
  Receipt Date: 20220608
  Transmission Date: 20220721
  Serious: No
  Sender: FDA-Public Use
  Company Number: US-PERRIGO-22US005672

PATIENT
  Age: 59 Year
  Sex: Male
  Weight: 91.61 kg

DRUGS (1)
  1. MINOXIDIL [Suspect]
     Active Substance: MINOXIDIL
     Indication: Alopecia
     Dosage: SMALL AMOUNT, QD
     Route: 061
     Dates: start: 202110, end: 20220315

REACTIONS (7)
  - Application site paraesthesia [Unknown]
  - Application site papules [Unknown]
  - Papule [Unknown]
  - Pruritus [Unknown]
  - Incorrect dose administered [Recovered/Resolved]
  - Inappropriate schedule of product administration [Recovered/Resolved]
  - Wrong technique in product usage process [Recovered/Resolved]

NARRATIVE: CASE EVENT DATE: 20211001
